FAERS Safety Report 6096786-3 (Version None)
Quarter: 2009Q1

REPORT INFORMATION
  Report Type: 
  Country: None (occurrence: None)
  Receive Date: 20090227
  Receipt Date: 20090216
  Transmission Date: 20090719
  Serious: Yes (Other)
  Sender: FDA-Public Use
  Company Number: US-PFIZER INC-2008092285

PATIENT
  Sex: Female
  Weight: 51.247 kg

DRUGS (2)
  1. CHANTIX [Suspect]
     Indication: TOBACCO ABUSE
     Dosage: UNK
     Dates: start: 20070416, end: 20070430
  2. CHANTIX [Suspect]
     Indication: HYPERTENSION

REACTIONS (8)
  - ABNORMAL DREAMS [None]
  - DIZZINESS [None]
  - DYSGEUSIA [None]
  - FALL [None]
  - HEADACHE [None]
  - NAUSEA [None]
  - SOMNAMBULISM [None]
  - WEIGHT DECREASED [None]
